FAERS Safety Report 21098529 (Version 1)
Quarter: 2022Q3

REPORT INFORMATION
  Report Type: Spontaneous
  Country: US (occurrence: US)
  Receive Date: 20220719
  Receipt Date: 20220719
  Transmission Date: 20221026
  Serious: No
  Sender: FDA-Public Use
  Company Number: US-UROGEN PHARMA LTD.-2022-UGN-000055

PATIENT

DRUGS (6)
  1. JELMYTO [Suspect]
     Active Substance: MITOMYCIN
     Indication: Transitional cell cancer of the renal pelvis and ureter
     Dosage: 10 MILLILITER,ONE TIME PER WEEK (INSTILLATION)
     Dates: start: 20220428, end: 20220428
  2. JELMYTO [Suspect]
     Active Substance: MITOMYCIN
     Dosage: 10 MILLILITER,ONE TIME PER WEEK (INSTILLATION)
     Dates: start: 20220505, end: 20220505
  3. JELMYTO [Suspect]
     Active Substance: MITOMYCIN
     Dosage: 10 MILLILITER,ONE TIME PER WEEK (INSTILLATION)
     Dates: start: 20220512, end: 20220512
  4. JELMYTO [Suspect]
     Active Substance: MITOMYCIN
     Dosage: 10 MILLILITER,ONE TIME PER WEEK (INSTILLATION)
     Dates: start: 20220519, end: 20220519
  5. JELMYTO [Suspect]
     Active Substance: MITOMYCIN
     Dosage: 10 MILLILITER,ONE TIME PER WEEK (INSTILLATION)
     Dates: start: 20220526, end: 20220526
  6. JELMYTO [Suspect]
     Active Substance: MITOMYCIN
     Dosage: 10 MILLILITER,ONE TIME PER WEEK (INSTILLATION)
     Dates: start: 20220602, end: 20220602

REACTIONS (3)
  - Body temperature increased [Recovered/Resolved]
  - Infection [Recovered/Resolved]
  - Instillation site pain [Recovered/Resolved]

NARRATIVE: CASE EVENT DATE: 20220512
